FAERS Safety Report 4664856-X (Version None)
Quarter: 2005Q2

REPORT INFORMATION
  Report Type: 
  Country: None (occurrence: None)
  Receive Date: 20050517
  Receipt Date: 20050409
  Transmission Date: 20051028
  Serious: Yes (Death)
  Sender: FDA-Public Use
  Company Number: 2005-127999-NL

PATIENT
  Sex: Male

DRUGS (22)
  1. DEXAMETHASONE [Suspect]
     Dosage: 2 MG
  2. IPRATROPIM BROMIDE W/SALBUTAMOL [Suspect]
     Dosage: RESPIRATORY (INHALATION)
     Route: 055
  3. TIOTROPIUM BROMIDE [Suspect]
     Dosage: 18 UG RESPIRATORY (INHALATION)
     Route: 055
  4. SALBUTAMOL [Suspect]
     Dosage: 200 UG BID RESPIRATORY (INHALATION)
     Route: 055
  5. ASPIRIN TAB [Suspect]
     Dosage: 75 MG
  6. ATORVASTATIN CALCIUM [Suspect]
  7. BECLOMETHASONE DIPROPIONATE [Suspect]
     Dosage: 100 UG BID  RESPIRATORY (INHALATION)
  8. FRUMIL [Suspect]
  9. DILTIAZEM [Suspect]
     Dosage: 60 MG QD
  10. DOSULEPIN [Suspect]
     Dosage: 75 MG QD
  11. FUROSEMIDE [Suspect]
     Dosage: 80 MG
  12. GAVISCON [Suspect]
     Dosage: 10 ML QID
  13. LACTULOSE [Suspect]
     Dosage: 670 MG/ML
  14. LANSOPRAZOLE [Suspect]
     Dosage: 30 MG QD
  15. METOCLOPRAMIDE [Suspect]
     Dosage: 10 MG TID
  16. NITROGLYCERIN [Suspect]
     Dosage: 400 MG
  17. LEVOMEPROMAZINE [Suspect]
     Dosage: 25 MG QID
  18. OXYCODONE HCL [Suspect]
     Dosage: 20 MG BID
  19. OXYGEN [Suspect]
     Dosage: DF RESPIRATORY (INHALATION)
     Route: 055
  20. SPIRONOLACTONE [Suspect]
     Dosage: 50 MG
  21. SYMBICORT [Suspect]
     Dosage: 2 PUFF BID RESPIRATORY (INHALATION)
     Route: 055
  22. TEMAZEPAM [Suspect]
     Dosage: 10 MG BID

REACTIONS (1)
  - LUNG NEOPLASM MALIGNANT [None]
